FAERS Safety Report 20500458 (Version 2)
Quarter: 2022Q2

REPORT INFORMATION
  Report Type: Report from Study
  Country: IN (occurrence: IN)
  Receive Date: 20220222
  Receipt Date: 20220531
  Transmission Date: 20220721
  Serious: Yes (Death, Other)
  Sender: FDA-Public Use
  Company Number: IN-NOVARTISPH-NVSC2022IN039751

PATIENT
  Age: 83 Year
  Sex: Female

DRUGS (1)
  1. RIBOCICLIB [Suspect]
     Active Substance: RIBOCICLIB
     Indication: Breast cancer
     Dosage: 400 MG, QD
     Route: 065
     Dates: start: 20210519

REACTIONS (2)
  - Death [Fatal]
  - Tumour ulceration [Unknown]

NARRATIVE: CASE EVENT DATE: 20210906
